FAERS Safety Report 26099168 (Version 1)
Quarter: 2025Q4

REPORT INFORMATION
  Report Type: Other
  Country: AU (occurrence: AU)
  Receive Date: 20251128
  Receipt Date: 20251128
  Transmission Date: 20260118
  Serious: Yes (Other)
  Sender: LUPIN
  Company Number: AU-LUPIN PHARMACEUTICALS INC.-2025-10665

PATIENT

DRUGS (1)
  1. RISPERIDONE [Suspect]
     Active Substance: RISPERIDONE
     Indication: Product used for unknown indication
     Dosage: UNK
     Route: 065

REACTIONS (11)
  - Accidental overdose [Unknown]
  - Gaze palsy [Unknown]
  - Oculogyric crisis [Unknown]
  - Opisthotonus [Unknown]
  - Agitation [Unknown]
  - Emotional distress [Unknown]
  - Incorrect dose administered [Unknown]
  - Posture abnormal [Unknown]
  - Restlessness [Unknown]
  - Somnolence [Unknown]
  - Torticollis [Unknown]
